FAERS Safety Report 9760888 (Version 1)
Quarter: 2013Q4

REPORT INFORMATION
  Report Type: Spontaneous
  Country: US (occurrence: US)
  Receive Date: 20131216
  Receipt Date: 20131216
  Transmission Date: 20140711
  Serious: Yes (Hospitalization)
  Sender: FDA-Public Use
  Company Number: US-BAYER-2013-150991

PATIENT
  Age: 61 Year
  Sex: Male

DRUGS (3)
  1. NAPROXEN SODIUM ({= 220 MG) [Suspect]
     Dosage: UNK
  2. IBUPROFEN [Suspect]
     Dosage: UNK
  3. PANTOPRAZOLE [Concomitant]

REACTIONS (2)
  - Rectal haemorrhage [None]
  - Large intestinal ulcer [None]
